FAERS Safety Report 10088090 (Version 2)
Quarter: 2014Q2

REPORT INFORMATION
  Report Type: Report from Study
  Country: US (occurrence: US)
  Receive Date: 20140421
  Receipt Date: 20140421
  Transmission Date: 20141212
  Serious: Yes (Other)
  Sender: FDA-Public Use
  Company Number: US-ROCHE-1376904

PATIENT
  Age: 6 Year
  Sex: Male
  Weight: 20.3 kg

DRUGS (5)
  1. NUTROPIN AQ [Suspect]
     Indication: GROWTH HORMONE DEFICIENCY
     Route: 058
     Dates: start: 20100605
  2. NUTROPIN AQ [Suspect]
     Indication: HYPOPITUITARISM
  3. OMNITROPE [Suspect]
     Indication: PRODUCT USED FOR UNKNOWN INDICATION
     Dosage: 6 DAYS A WEEK
     Route: 058
  4. CORTEF [Concomitant]
     Indication: PYREXIA
     Dosage: 1.5 TABLETS BY MOUTH THREE TIMES A DAY.
     Route: 065
  5. CORTEF [Concomitant]
     Indication: ILL-DEFINED DISORDER
     Route: 048

REACTIONS (3)
  - Fatigue [Unknown]
  - Arthralgia [Unknown]
  - Malaise [Unknown]
